FAERS Safety Report 7225557-7 (Version None)
Quarter: 2011Q1

REPORT INFORMATION
  Report Type: 
  Country: None (occurrence: None)
  Receive Date: 20110103
  Receipt Date: 20101216
  Transmission Date: 20110831
  Serious: Yes (Hospitalization)
  Sender: FDA-Public Use
  Company Number: 2010005483

PATIENT
  Age: 63 Year
  Sex: Male

DRUGS (1)
  1. TARCEVA [Suspect]
     Indication: LUNG NEOPLASM MALIGNANT
     Dosage: (150 MG, DAILY), ORAL
     Route: 048
     Dates: start: 20101207, end: 20101212

REACTIONS (4)
  - NAUSEA [None]
  - VOMITING [None]
  - DEHYDRATION [None]
  - CONVULSION [None]
